FAERS Safety Report 13970679 (Version 4)
Quarter: 2018Q3

REPORT INFORMATION
  Report Type: Spontaneous
  Country: US (occurrence: US)
  Receive Date: 20170914
  Receipt Date: 20180724
  Transmission Date: 20181010
  Serious: Yes (Hospitalization, Other)
  Sender: FDA-Public Use
  Company Number: US-ASTELLAS-2016US041009

PATIENT
  Age: 78 Year
  Sex: Male

DRUGS (1)
  1. XTANDI [Suspect]
     Active Substance: ENZALUTAMIDE
     Indication: PROSTATE CANCER
     Route: 065

REACTIONS (12)
  - Asthenia [Unknown]
  - Chronic obstructive pulmonary disease [Unknown]
  - Dizziness [Unknown]
  - Decreased appetite [Unknown]
  - Feeling abnormal [Unknown]
  - Weight decreased [Not Recovered/Not Resolved]
  - Prostatic specific antigen increased [Unknown]
  - Anaemia [Unknown]
  - Pneumonia [Unknown]
  - Hypertension [Unknown]
  - Diarrhoea [Unknown]
  - Muscular weakness [Unknown]

NARRATIVE: CASE EVENT DATE: 20180702
